FAERS Safety Report 19582397 (Version 1)
Quarter: 2021Q3

REPORT INFORMATION
  Report Type: Spontaneous
  Country: GB (occurrence: GB)
  Receive Date: 20210720
  Receipt Date: 20210720
  Transmission Date: 20211014
  Serious: Yes (Other)
  Sender: FDA-Public Use
  Company Number: GB-TILLOMEDPR-2021-EPL-002371

PATIENT
  Age: 63 Year
  Sex: Female

DRUGS (3)
  1. AMLODIPINE BESILATE [Concomitant]
     Active Substance: AMLODIPINE BESYLATE
     Indication: ILL-DEFINED DISORDER
  2. ZOLEDRONIC ACID [Suspect]
     Active Substance: ZOLEDRONIC ACID
     Indication: OSTEOPOROSIS
     Dosage: UNK
     Route: 051
     Dates: start: 20210622, end: 20210622
  3. CALCICHEW D3 [Concomitant]
     Active Substance: CALCIUM\CHOLECALCIFEROL
     Indication: ILL-DEFINED DISORDER

REACTIONS (1)
  - Eye pruritus [Recovering/Resolving]

NARRATIVE: CASE EVENT DATE: 20210629
